FAERS Safety Report 5225452-9 (Version None)
Quarter: 2006Q4

REPORT INFORMATION
  Report Type: 
  Country: None (occurrence: None)
  Receive Date: 20061201
  Receipt Date: 20060818
  Transmission Date: 20070319
  Serious: No
  Sender: FDA-Public Use
  Company Number: US200608004551

PATIENT
  Age: 50 Year
  Sex: Female

DRUGS (5)
  1. CYMBALTA [Suspect]
     Indication: DRUG USE FOR UNKNOWN INDICATION
     Dosage: 60 MG, AS NEEDED
  2. GEODON [Concomitant]
  3. DIOVAN [Concomitant]
  4. TOPAMAX [Concomitant]
  5. NEXIUM [Concomitant]

REACTIONS (2)
  - MEMORY IMPAIRMENT [None]
  - URINARY TRACT INFECTION [None]
